FAERS Safety Report 9351473 (Version 1)
Quarter: 2013Q2

REPORT INFORMATION
  Report Type: Spontaneous
  Country: GB (occurrence: GB)
  Receive Date: 20130617
  Receipt Date: 20130617
  Transmission Date: 20140414
  Serious: Yes (Other)
  Sender: FDA-Public Use
  Company Number: GB-ROXANE LABORATORIES, INC.-2013-RO-00950RO

PATIENT
  Age: 51 Year
  Sex: Female

DRUGS (2)
  1. AZATHIOPRINE [Suspect]
     Indication: EYE DISORDER
     Dosage: 150 MG
  2. PREDNISOLONE [Suspect]
     Indication: EYE DISORDER
     Dosage: 40 MG
     Route: 048

REACTIONS (1)
  - Keratosis follicular [Recovered/Resolved]
